FAERS Safety Report 9702913 (Version 3)
Quarter: 2014Q2

REPORT INFORMATION
  Report Type: Spontaneous
  Country: US (occurrence: US)
  Receive Date: 20131121
  Receipt Date: 20140527
  Transmission Date: 20141212
  Serious: Yes (Other)
  Sender: FDA-Public Use
  Company Number: US-UCBSA-103574

PATIENT
  Age: 35 Year
  Sex: Female
  Weight: 47.6 kg

DRUGS (10)
  1. CIMZIA [Suspect]
     Indication: ANKYLOSING SPONDYLITIS
     Dosage: 200MG QOW
     Route: 058
     Dates: start: 20130711, end: 20131030
  2. ALPRAZOLAM [Concomitant]
     Route: 048
  3. AMLODIPINE BESYLATE [Concomitant]
     Route: 048
  4. PROMETHAZINE [Concomitant]
     Indication: NAUSEA
     Dosage: AS REQUIRED
     Route: 048
  5. ADDERALL [Concomitant]
     Indication: CONVULSION
  6. NORCO [Concomitant]
  7. FLEXERIL [Concomitant]
  8. HYDROCODONE-ACETAMINOPHEN [Concomitant]
     Dosage: 5-325MG
  9. ZOFRAN [Concomitant]
     Dosage: AS REQUIRED
  10. PLAQUENIL [Concomitant]
     Route: 048

REACTIONS (2)
  - Pregnancy [Recovered/Resolved]
  - Abortion spontaneous [Unknown]
